FAERS Safety Report 4741344-3 (Version None)
Quarter: 2005Q3

REPORT INFORMATION
  Report Type: 
  Country: None (occurrence: None)
  Receive Date: 20050808
  Receipt Date: 20050727
  Transmission Date: 20060218
  Serious: Yes (Other)
  Sender: FDA-Public Use
  Company Number: USA0507103952

PATIENT
  Age: 79 Year
  Sex: Male

DRUGS (1)
  1. FORTEO [Suspect]
     Indication: OSTEOPOROSIS
     Dates: start: 20040501, end: 20050723

REACTIONS (8)
  - BLOOD BLISTER [None]
  - CHROMATURIA [None]
  - CONTUSION [None]
  - DEMENTIA [None]
  - ERYTHEMA [None]
  - PHARMACEUTICAL PRODUCT COMPLAINT [None]
  - URINE ANALYSIS ABNORMAL [None]
  - VASCULAR INJURY [None]
